FAERS Safety Report 9136945 (Version 1)
Quarter: 2013Q1

REPORT INFORMATION
  Report Type: Spontaneous
  Country: DK (occurrence: FR)
  Receive Date: 20130219
  Receipt Date: 20130219
  Transmission Date: 20140127
  Serious: Yes (Disabling)
  Sender: FDA-Public Use
  Company Number: FR-FRI-1000042711

PATIENT
  Sex: Female
  Weight: 83 kg

DRUGS (1)
  1. ESCITALOPRAM [Suspect]
     Indication: DEPRESSION
     Dosage: 15 MG
     Dates: start: 20120521, end: 20130121

REACTIONS (2)
  - Memory impairment [Unknown]
  - Disturbance in attention [Unknown]
